FAERS Safety Report 6709059-X (Version None)
Quarter: 2010Q2

REPORT INFORMATION
  Report Type: 
  Country: None (occurrence: None)
  Receive Date: 20100430
  Receipt Date: 20100430
  Transmission Date: 20101027
  Serious: Yes (Death)
  Sender: FDA-Public Use
  Company Number: None

PATIENT
  Age: 54 Year
  Sex: Female
  Weight: 129 kg

DRUGS (2)
  1. UVA URSI UNK UNK [Suspect]
     Indication: DRUG USE FOR UNKNOWN INDICATION
     Dosage: UNK UNK ORAL 047
     Route: 048
  2. BUCHU LEAF UNK UNK [Suspect]
     Indication: DRUG USE FOR UNKNOWN INDICATION
     Dosage: UNK UNK ORAL 047

REACTIONS (5)
  - COAGULOPATHY [None]
  - HEPATIC FAILURE [None]
  - MENTAL STATUS CHANGES [None]
  - PYREXIA [None]
  - RENAL FAILURE ACUTE [None]
